FAERS Safety Report 12829337 (Version 1)
Quarter: 2016Q4

REPORT INFORMATION
  Report Type: Spontaneous
  Country: HK (occurrence: HK)
  Receive Date: 20161007
  Receipt Date: 20161007
  Transmission Date: 20170207
  Serious: Yes (Other)
  Sender: FDA-Public Use
  Company Number: HK-GLAXOSMITHKLINE-HK2016GSK147618

PATIENT

DRUGS (1)
  1. DICLOFENAC SODIUM. [Suspect]
     Active Substance: DICLOFENAC SODIUM
     Indication: PROPHYLAXIS
     Dosage: 100 MG, SINGLE

REACTIONS (2)
  - Drug ineffective for unapproved indication [Unknown]
  - Pancreatitis [Unknown]
